FAERS Safety Report 10138050 (Version 2)
Quarter: 2014Q2

REPORT INFORMATION
  Report Type: Spontaneous
  Country: US (occurrence: None)
  Receive Date: 20140425
  Receipt Date: 20140529
  Transmission Date: 20141212
  Serious: Yes (Other)
  Sender: FDA-Public Use
  Company Number: UTC-047302

PATIENT
  Age: 71 Year
  Sex: Female
  Weight: 73.5 kg

DRUGS (4)
  1. REMODULIN [Suspect]
     Indication: COR PULMONALE CHRONIC
     Dosage: 144 UG/KG 0.1 UG/KG 1 IN 1
     Route: 041
     Dates: start: 20090310
  2. TRACLEER (BOSENTAN) [Concomitant]
  3. REVATIO (SILDENAFIL CITRATE) [Concomitant]
  4. WARFARIN (WARFARIN) [Concomitant]

REACTIONS (2)
  - Multiple fractures [None]
  - Foot fracture [None]
